FAERS Safety Report 5554127-1 (Version None)
Quarter: 2007Q4

REPORT INFORMATION
  Report Type: 
  Country: None (occurrence: None)
  Receive Date: 20071213
  Receipt Date: 20071206
  Transmission Date: 20080405
  Serious: Yes (Hospitalization)
  Sender: FDA-Public Use
  Company Number: TR-AVENTIS-200721180GDDC

PATIENT
  Age: 62 Year
  Sex: Female

DRUGS (1)
  1. MINIRIN [Suspect]
     Indication: DIABETES INSIPIDUS

REACTIONS (1)
  - HYPERTENSIVE ENCEPHALOPATHY [None]
